FAERS Safety Report 9748364 (Version 1)
Quarter: 2013Q4

REPORT INFORMATION
  Report Type: Report from Study
  Country: FR (occurrence: FR)
  Receive Date: 20131212
  Receipt Date: 20131212
  Transmission Date: 20140711
  Serious: Yes (Other)
  Sender: FDA-Public Use
  Company Number: FR-CELGENEUS-056-C4047-13115911

PATIENT
  Age: 66 Year
  Sex: Female
  Weight: 61 kg

DRUGS (6)
  1. CC-4047 [Suspect]
     Indication: PLASMA CELL MYELOMA
     Route: 048
     Dates: start: 20120918
  2. DEXAMETHASONE [Concomitant]
     Indication: PRODUCT USED FOR UNKNOWN INDICATION
     Route: 065
  3. KARDEGIC [Concomitant]
     Indication: PROPHYLAXIS
     Route: 065
  4. CODEIN [Concomitant]
     Indication: PROPHYLAXIS
     Route: 065
  5. IMOVANE [Concomitant]
     Indication: PROPHYLAXIS
     Route: 065
  6. INNOHEP [Concomitant]
     Indication: PROPHYLAXIS
     Route: 065

REACTIONS (8)
  - Lymphocyte count decreased [Unknown]
  - White blood cell count decreased [Unknown]
  - Haemoglobin decreased [Unknown]
  - Platelet aggregation [Unknown]
  - Neutropenia [Recovered/Resolved]
  - Creatinine renal clearance decreased [Unknown]
  - Neutrophil count decreased [Unknown]
  - Neutrophil count decreased [Unknown]
